FAERS Safety Report 9743186 (Version 2)
Quarter: 2013Q4

REPORT INFORMATION
  Report Type: Spontaneous
  Country: US (occurrence: US)
  Receive Date: 20131210
  Receipt Date: 20131210
  Transmission Date: 20140711
  Serious: No
  Sender: FDA-Public Use
  Company Number: US-GILEAD-2009-0024373

PATIENT
  Sex: Female
  Weight: 160.57 kg

DRUGS (9)
  1. LETAIRIS [Suspect]
     Indication: PULMONARY ARTERIAL HYPERTENSION
     Route: 048
     Dates: start: 20081210
  2. BUMEX [Concomitant]
  3. ZOCOR [Concomitant]
  4. PROTONIX [Concomitant]
  5. COUMADIN [Concomitant]
  6. MELLARIL [Concomitant]
  7. RESTORIL [Concomitant]
  8. ADVAIR 500-50 DISKUS [Concomitant]
  9. ADVIL [Concomitant]

REACTIONS (1)
  - Dizziness [Unknown]
